FAERS Safety Report 8055864-X (Version None)
Quarter: 2012Q1

REPORT INFORMATION
  Report Type: 
  Country: None (occurrence: None)
  Receive Date: 20120119
  Receipt Date: 20120119
  Transmission Date: 20120608
  Serious: No
  Sender: FDA-Public Use
  Company Number: None

PATIENT
  Age: 67 Year
  Sex: Female
  Weight: 63.502 kg

DRUGS (1)
  1. VENLAFAXINE HCL [Suspect]
     Indication: HOT FLUSH
     Dosage: ONE CAP
     Dates: start: 20100130, end: 20120118

REACTIONS (7)
  - AGITATION [None]
  - CRYING [None]
  - NAUSEA [None]
  - HEADACHE [None]
  - MALAISE [None]
  - DRUG INEFFECTIVE [None]
  - TINNITUS [None]
